FAERS Safety Report 12192886 (Version 1)
Quarter: 2016Q1

REPORT INFORMATION
  Report Type: Spontaneous
  Country: US (occurrence: US)
  Receive Date: 20160318
  Receipt Date: 20160318
  Transmission Date: 20160526
  Serious: Yes (Death, Hospitalization, Other)
  Sender: FDA-Public Use
  Company Number: US-BRISTOL-MYERS SQUIBB COMPANY-BMS-2016-018631

PATIENT
  Sex: Male

DRUGS (1)
  1. ELIQUIS [Suspect]
     Active Substance: APIXABAN
     Indication: THROMBOSIS PROPHYLAXIS
     Dosage: 5MG
     Route: 048

REACTIONS (7)
  - Feeling abnormal [Unknown]
  - Faeces discoloured [Unknown]
  - Dehydration [Unknown]
  - Malaise [Unknown]
  - Death [Fatal]
  - Hospitalisation [Unknown]
  - Transfusion [Unknown]
